FAERS Safety Report 21789944 (Version 2)
Quarter: 2023Q1

REPORT INFORMATION
  Report Type: Report from Study
  Country: CA (occurrence: CA)
  Receive Date: 20221228
  Receipt Date: 20230123
  Transmission Date: 20230418
  Serious: Yes (Other)
  Sender: FDA-Public Use
  Company Number: CA-JNJFOC-20221246538

PATIENT
  Age: 72 Year
  Sex: Male
  Weight: 62 kg

DRUGS (5)
  1. REMICADE [Suspect]
     Active Substance: INFLIXIMAB
     Indication: Colitis ulcerative
     Dosage: EXPIRY DATE: 31-JUL-2025
     Route: 041
  2. REMICADE [Suspect]
     Active Substance: INFLIXIMAB
     Indication: Spondylitis
  3. TYLENOL [Concomitant]
     Active Substance: ACETAMINOPHEN
     Indication: Premedication
     Route: 048
  4. BENADRYL [Concomitant]
     Active Substance: DIPHENHYDRAMINE HYDROCHLORIDE
     Indication: Premedication
     Route: 048
  5. METHYLPREDNISOLONE [Concomitant]
     Active Substance: METHYLPREDNISOLONE
     Indication: Premedication
     Route: 042

REACTIONS (9)
  - Respiratory tract congestion [Recovered/Resolved]
  - Panic reaction [Recovered/Resolved]
  - Heart rate increased [Recovered/Resolved]
  - Palpitations [Recovered/Resolved]
  - Cough [Recovered/Resolved]
  - Infusion related reaction [Recovered/Resolved]
  - Lip swelling [Recovered/Resolved]
  - Peripheral swelling [Recovered/Resolved]
  - Nervousness [Recovered/Resolved]

NARRATIVE: CASE EVENT DATE: 20221220
